FAERS Safety Report 19661228 (Version 1)
Quarter: 2021Q3

REPORT INFORMATION
  Report Type: Spontaneous
  Country: US (occurrence: US)
  Receive Date: 20210805
  Receipt Date: 20210805
  Transmission Date: 20211014
  Serious: Yes (Disabling)
  Sender: FDA-Public Use
  Company Number: None

PATIENT
  Age: 9 Year
  Sex: Male
  Weight: 44.1 kg

DRUGS (4)
  1. CLONIDINE. [Concomitant]
     Active Substance: CLONIDINE
  2. CHILD LORATADINE 5MG/5ML SOL [Suspect]
     Active Substance: LORATADINE
     Indication: HYPERSENSITIVITY
     Dosage: ?          QUANTITY:10 ML;?
     Route: 048
     Dates: start: 20210711, end: 20210711
  3. ADDERALL 20 MG ER [Concomitant]
  4. FLUTICASONE PROPIONATE SPRAY [Concomitant]

REACTIONS (5)
  - Rhinorrhoea [None]
  - Ocular hyperaemia [None]
  - Cough [None]
  - Swelling of eyelid [None]
  - Lacrimation increased [None]

NARRATIVE: CASE EVENT DATE: 20210711
